FAERS Safety Report 6773610-4 (Version None)
Quarter: 2010Q2

REPORT INFORMATION
  Report Type: 
  Country: None (occurrence: None)
  Receive Date: 20100614
  Receipt Date: 20100512
  Transmission Date: 20101027
  Serious: Yes (Other)
  Sender: FDA-Public Use
  Company Number: 2010SP021902

PATIENT
  Age: 38 Year
  Sex: Female

DRUGS (2)
  1. NUVARING [Suspect]
     Indication: CONTRACEPTION
     Dosage: 1 DF;QM;VAG
     Route: 067
     Dates: start: 20100110, end: 20100427
  2. FLUOXETINE (CON.) [Concomitant]

REACTIONS (3)
  - BURNING SENSATION [None]
  - LIP PAIN [None]
  - PARAESTHESIA ORAL [None]
